FAERS Safety Report 10066336 (Version 1)
Quarter: 2014Q2

REPORT INFORMATION
  Report Type: Spontaneous
  Country: DE (occurrence: DE)
  Receive Date: 20140408
  Receipt Date: 20140408
  Transmission Date: 20141212
  Serious: Yes (Congenital Anomaly)
  Sender: FDA-Public Use
  Company Number: DE-WATSON-2013-25103

PATIENT
  Sex: Male
  Weight: 2.71 kg

DRUGS (5)
  1. RAMIPRIL (UNKNOWN) [Suspect]
     Indication: HYPERTENSION
     Route: 064
     Dates: start: 20070215, end: 20071001
  2. MOXONIDINE (UNKNOWN) [Suspect]
     Indication: HYPERTENSION
     Route: 064
     Dates: start: 20070215, end: 20071001
  3. TORASEMIDE (UNKNOWN) [Suspect]
     Indication: HYPERTENSION
     Route: 064
     Dates: start: 20070215, end: 20071001
  4. AMLODIPINE (UNKNOWN) [Suspect]
     Indication: HYPERTENSION
     Route: 062
     Dates: start: 20070215, end: 20071001
  5. METOPROLOL-CORAX [Concomitant]
     Indication: HYPERTENSION
     Route: 064
     Dates: start: 20070215, end: 20071001

REACTIONS (7)
  - Atrial septal defect [Recovered/Resolved]
  - Cranial sutures widening [Not Recovered/Not Resolved]
  - Foot deformity [Not Recovered/Not Resolved]
  - Cardiac septal hypertrophy [Not Recovered/Not Resolved]
  - Abnormal palmar/plantar creases [Not Recovered/Not Resolved]
  - Dysmorphism [Not Recovered/Not Resolved]
  - Strabismus [Unknown]
